FAERS Safety Report 9339897 (Version 1)
Quarter: 2013Q2

REPORT INFORMATION
  Report Type: Spontaneous
  Country: BR (occurrence: BR)
  Receive Date: 20130610
  Receipt Date: 20130610
  Transmission Date: 20140414
  Serious: Yes (Other)
  Sender: FDA-Public Use
  Company Number: BR-BRISTOL-MYERS SQUIBB COMPANY-18988634

PATIENT
  Age: 65 Year
  Sex: Female
  Weight: 56 kg

DRUGS (3)
  1. APROZIDE [Suspect]
     Indication: HYPERTENSION
     Dosage: 1DF: 0.5 OF 300/12.5 MG TABS
     Route: 048
  2. CENTRUM [Concomitant]
     Dosage: ONGOING
     Route: 048
     Dates: start: 201305
  3. VENLAFAXINE HCL [Concomitant]
     Indication: DEPRESSION
     Dosage: ONGOING
     Route: 048
     Dates: start: 201005

REACTIONS (2)
  - Diabetes mellitus [Not Recovered/Not Resolved]
  - Medication error [Unknown]
